FAERS Safety Report 18338530 (Version 3)
Quarter: 2020Q4

REPORT INFORMATION
  Report Type: Spontaneous
  Country: CZ (occurrence: CZ)
  Receive Date: 20201002
  Receipt Date: 20201015
  Transmission Date: 20210113
  Serious: Yes (Death, Other)
  Sender: FDA-Public Use
  Company Number: CZ-PFIZER INC-2020378661

PATIENT
  Age: 43 Year
  Sex: Male

DRUGS (2)
  1. SANDOSTATIN LAR DEPOT [Concomitant]
     Active Substance: OCTREOTIDE ACETATE
     Indication: THYMOMA MALIGNANT
     Dosage: 20 MG, MONTHLY (EVERY 4 WEEKS)
     Route: 030
     Dates: start: 201105
  2. MEDROL [Suspect]
     Active Substance: METHYLPREDNISOLONE
     Indication: THYMOMA MALIGNANT
     Dosage: 32 MG, DAILY
     Route: 048
     Dates: start: 201105, end: 201107

REACTIONS (1)
  - Steroid diabetes [Recovering/Resolving]

NARRATIVE: CASE EVENT DATE: 201107
